FAERS Safety Report 7206372 (Version 4)
Quarter: 2016Q1

REPORT INFORMATION
  Report Type: Spontaneous
  Country: US (occurrence: US)
  Receive Date: 20091209
  Receipt Date: 20160317
  Transmission Date: 20160526
  Serious: Yes (Hospitalization, Disabling)
  Sender: FDA-Public Use
  Company Number: US-BAYER-200941655NA

PATIENT
  Age: 35 Year
  Sex: Female
  Weight: 54.29 kg

DRUGS (4)
  1. LEVSIN [Concomitant]
     Active Substance: HYOSCYAMINE SULFATE
     Indication: IRRITABLE BOWEL SYNDROME
     Dosage: UNK UNK, PRN
  2. YASMIN [Suspect]
     Active Substance: DROSPIRENONE\ETHINYL ESTRADIOL
     Indication: CONTRACEPTION
     Dates: start: 2003, end: 200712
  3. YAZ [Suspect]
     Active Substance: DROSPIRENONE\ETHINYL ESTRADIOL
     Indication: CONTRACEPTION
     Dates: start: 2003, end: 200712
  4. ACCUTANE [Concomitant]
     Active Substance: ISOTRETINOIN

REACTIONS (5)
  - Cerebrovascular accident [Recovering/Resolving]
  - Hemiparesis [Recovering/Resolving]
  - Cerebral haemorrhage [None]
  - Speech disorder [Unknown]
  - Physical disability [Recovering/Resolving]

NARRATIVE: CASE EVENT DATE: 20071211
